FAERS Safety Report 12180886 (Version 2)
Quarter: 2016Q2

REPORT INFORMATION
  Report Type: Spontaneous
  Country: US (occurrence: US)
  Receive Date: 20160315
  Receipt Date: 20160411
  Transmission Date: 20160815
  Serious: Yes (Hospitalization)
  Sender: FDA-Public Use
  Company Number: US-009507513-1603USA006131

PATIENT
  Age: 67 Year
  Sex: Male

DRUGS (2)
  1. EMEND [Suspect]
     Active Substance: APREPITANT
     Indication: NON-HODGKIN^S LYMPHOMA
     Dosage: TRIPAK-120MG / 80MG
     Route: 048
  2. EMEND [Suspect]
     Active Substance: APREPITANT
     Dosage: TRIPAK-120MG / 80MG
     Route: 048
     Dates: start: 20160406

REACTIONS (3)
  - Influenza [Recovered/Resolved]
  - Product use issue [Unknown]
  - Malaise [Unknown]

NARRATIVE: CASE EVENT DATE: 20160306
